FAERS Safety Report 5924396-4 (Version None)
Quarter: 2008Q4

REPORT INFORMATION
  Report Type: 
  Country: None (occurrence: None)
  Receive Date: 20081020
  Receipt Date: 20081014
  Transmission Date: 20090506
  Serious: Yes (Other)
  Sender: FDA-Public Use
  Company Number: FI-B.I. PHARMACEUTICALS,INC./RIDGEFIELD-2008-DE-06089GD

PATIENT
  Age: 38 Year
  Sex: Male

DRUGS (4)
  1. DIPYRIDAMOLE [Suspect]
     Indication: ANTICOAGULANT THERAPY
     Dosage: 225MG
  2. HEPARIN [Suspect]
     Indication: ANTICOAGULANT THERAPY
  3. ACETYLSALICYLIC ACID SRT [Suspect]
     Indication: ANTICOAGULANT THERAPY
     Dosage: 100MG
  4. COUMADIN [Suspect]
     Indication: ANTICOAGULANT THERAPY

REACTIONS (2)
  - DRUG INEFFECTIVE [None]
  - HYPERCOAGULATION [None]
